FAERS Safety Report 7927049-6 (Version None)
Quarter: 2011Q4

REPORT INFORMATION
  Report Type: 
  Country: None (occurrence: None)
  Receive Date: 20111118
  Receipt Date: 20111109
  Transmission Date: 20120403
  Serious: Yes (Hospitalization)
  Sender: FDA-Public Use
  Company Number: CA-JNJFOC-20111105055

PATIENT
  Sex: Male
  Weight: 70 kg

DRUGS (8)
  1. RAMIPRIL [Concomitant]
     Route: 065
  2. REMICADE [Suspect]
     Indication: CROHN'S DISEASE
     Dosage: 25TH INFUSION
     Route: 042
     Dates: start: 20111109
  3. NITROGLYCERIN SPRAY [Concomitant]
     Route: 065
  4. REMICADE [Suspect]
     Route: 042
     Dates: start: 20081202
  5. LIPITOR [Concomitant]
     Route: 065
  6. ASPIRIN [Concomitant]
     Route: 065
  7. MULTI-VITAMINS [Concomitant]
     Route: 065
  8. APO-DILTIAZ [Concomitant]
     Route: 065

REACTIONS (2)
  - HIP FRACTURE [None]
  - FALL [None]
